FAERS Safety Report 19233111 (Version 2)
Quarter: 2021Q2

REPORT INFORMATION
  Report Type: Spontaneous
  Country: US (occurrence: US)
  Receive Date: 20210507
  Receipt Date: 20210615
  Transmission Date: 20210717
  Serious: Yes (Hospitalization)
  Sender: FDA-Public Use
  Company Number: US-GW PHARMA-202104USGW02211

PATIENT

DRUGS (16)
  1. EPIDIOLEX [Suspect]
     Active Substance: CANNABIDIOL
     Dosage: 22 MG/KG, 600 MILLIGRAM, BID
     Route: 048
     Dates: start: 2021
  2. KEPPRA [Concomitant]
     Active Substance: LEVETIRACETAM
     Indication: EPILEPSY
     Dosage: 2 GRAM, BID (2 MG= 20 ML)
  3. FAMOTIDINE. [Concomitant]
     Active Substance: FAMOTIDINE
     Indication: GASTROINTESTINAL DISORDER
     Dosage: 20 MILLIGRAM, BID (20 MG= 2.5 ML)
  4. CETRIZINE [Concomitant]
     Active Substance: CETIRIZINE HYDROCHLORIDE
     Indication: HYPERSENSITIVITY
     Dosage: 5 MILLILITER, QD (5 MG= 5ML), PRN
     Route: 048
     Dates: start: 202105
  5. SINGULAIR [Concomitant]
     Active Substance: MONTELUKAST SODIUM
     Indication: PRODUCT USED FOR UNKNOWN INDICATION
     Dosage: 5 MILLIGRAM, QD (AT NIGHT)
     Route: 048
  6. FLUTICANOSE [Concomitant]
     Active Substance: FLUTICASONE PROPIONATE
     Indication: PRODUCT USED FOR UNKNOWN INDICATION
     Dosage: 1 ACTUATION, QD
     Route: 045
     Dates: start: 202105
  7. EPIDIOLEX [Suspect]
     Active Substance: CANNABIDIOL
     Indication: LENNOX-GASTAUT SYNDROME
     Dosage: 18 MG/KG/DAY
     Route: 048
     Dates: start: 20181205, end: 2021
  8. EPIDIOLEX [Suspect]
     Active Substance: CANNABIDIOL
     Dosage: 22 MG/KG, 600 MILLIGRAM, BID
     Dates: start: 2021, end: 2021
  9. DEPAKOTE [Concomitant]
     Active Substance: DIVALPROEX SODIUM
     Indication: EPILEPSY
     Dosage: 250 MILLIGRAM, BID (250 MG= 5ML)
  10. VALTOCO [Concomitant]
     Active Substance: DIAZEPAM
     Indication: PRODUCT USED FOR UNKNOWN INDICATION
     Dosage: 1 EA, AS DIRECTED, PRN
     Route: 045
  11. LEVOCARNITINE. [Concomitant]
     Active Substance: LEVOCARNITINE
     Indication: GASTROINTESTINAL DISORDER
     Dosage: 2 GRAM, QD (2 GRAM= 20ML)
  12. GLUCERNA [Concomitant]
     Active Substance: AMINO ACIDS\DEXTROSE\ELECTROLYTES NOS\SOYBEAN OIL\VITAMINS
     Indication: SUPPLEMENTATION THERAPY
     Dosage: UNK, TID BOLUSES
     Route: 065
  13. CLOBAZAM. [Concomitant]
     Active Substance: CLOBAZAM
     Indication: EPILEPSY
     Dosage: 2 MILLIGRAM, TID
     Route: 065
  14. TOPAMAX [Concomitant]
     Active Substance: TOPIRAMATE
     Indication: EPILEPSY
     Dosage: 200 MILLIGRAM, BID
  15. CLONAZEPAM. [Concomitant]
     Active Substance: CLONAZEPAM
     Indication: EPILEPSY
     Dosage: 2 MILLIGRAM, Q8H
  16. BENEPROTEIN [Concomitant]
     Active Substance: DIETARY SUPPLEMENT
     Indication: SUPPLEMENTATION THERAPY
     Dosage: UNK, TID BOLUSES
     Route: 065

REACTIONS (4)
  - Oxygen saturation decreased [Recovered/Resolved]
  - Atypical pneumonia [Unknown]
  - Respiratory distress [Recovered/Resolved]
  - Pneumonia aspiration [Recovered/Resolved]

NARRATIVE: CASE EVENT DATE: 20210317
